FAERS Safety Report 9515096 (Version 1)
Quarter: 2013Q3

REPORT INFORMATION
  Report Type: Spontaneous
  Country: GB (occurrence: GB)
  Receive Date: 20130911
  Receipt Date: 20130911
  Transmission Date: 20140515
  Serious: Yes (Hospitalization)
  Sender: FDA-Public Use
  Company Number: GB-JNJFOC-20130904565

PATIENT
  Age: 72 Year
  Sex: Female
  Weight: 52.73 kg

DRUGS (9)
  1. XARELTO [Suspect]
     Indication: PRODUCT USED FOR UNKNOWN INDICATION
     Route: 048
     Dates: start: 20130711
  2. SIMVASTATIN [Concomitant]
     Route: 065
     Dates: start: 20130509, end: 20130805
  3. EPILIM [Concomitant]
     Route: 065
     Dates: start: 20130522, end: 20130718
  4. WARFARIN SODIUM [Concomitant]
     Route: 065
     Dates: start: 20130610, end: 20130805
  5. LANSOPRAZOLE [Concomitant]
     Route: 065
     Dates: start: 20130509, end: 20130805
  6. RAMIPRIL [Concomitant]
     Route: 065
     Dates: start: 20130522, end: 20130718
  7. DIGOXIN [Concomitant]
     Route: 065
     Dates: start: 20130509, end: 20130805
  8. BISOPROLOL [Concomitant]
     Route: 065
     Dates: start: 20130509, end: 20130805
  9. LACIDIPINE [Concomitant]
     Route: 065
     Dates: start: 20130502, end: 20130724

REACTIONS (2)
  - Cerebrovascular accident [Unknown]
  - Cerebral haemorrhage [Recovering/Resolving]
